FAERS Safety Report 5614535-7 (Version None)
Quarter: 2008Q1

REPORT INFORMATION
  Report Type: 
  Country: None (occurrence: None)
  Receive Date: 20080205
  Receipt Date: 20080110
  Transmission Date: 20080703
  Serious: No
  Sender: FDA-Public Use
  Company Number: US-BOEHRINGER INGELHEIM GMBH, GERMANY-2007-BP-25655BP

PATIENT
  Age: 79 Year
  Sex: Male

DRUGS (1)
  1. CATAPRES-TTS-1 [Suspect]
     Indication: HYPERTENSION
     Route: 061
     Dates: start: 20030101

REACTIONS (4)
  - APPLICATION SITE ODOUR [None]
  - BLOOD PRESSURE INCREASED [None]
  - MEDICATION ERROR [None]
  - NAUSEA [None]
